FAERS Safety Report 7100300-0 (Version None)
Quarter: 2010Q4

REPORT INFORMATION
  Report Type: 
  Country: None (occurrence: None)
  Receive Date: 20101112
  Receipt Date: 20101109
  Transmission Date: 20110411
  Serious: Yes (Life-Threatening, Hospitalization)
  Sender: FDA-Public Use
  Company Number: ES-AMGEN-ESPCT2010003655

PATIENT
  Sex: Female

DRUGS (5)
  1. PANITUMUMAB [Suspect]
     Indication: COLORECTAL CANCER
     Dosage: 408 MG, Q2WK
     Route: 042
     Dates: start: 20100928
  2. OXALIPLATIN [Suspect]
     Indication: COLORECTAL CANCER
     Dosage: 107 MG, Q2WK
     Route: 042
     Dates: start: 20100928
  3. LEUCOVORIN CALCIUM [Suspect]
     Indication: COLORECTAL CANCER
     Dosage: 660 MG, Q2WK
     Route: 042
     Dates: start: 20100928
  4. FLUOROURACIL [Suspect]
     Indication: COLORECTAL CANCER
     Dosage: UNK UNK, Q2WK
     Route: 042
     Dates: start: 20100928
  5. TRAMADOL HCL [Concomitant]
     Dosage: 50 MG, Q8H
     Route: 048
     Dates: start: 20101007

REACTIONS (5)
  - BLOOD CALCIUM DECREASED [None]
  - DIARRHOEA [None]
  - HYPOALBUMINAEMIA [None]
  - HYPOKALAEMIA [None]
  - HYPOPHOSPHATAEMIA [None]
